FAERS Safety Report 25251672 (Version 1)
Quarter: 2025Q2

REPORT INFORMATION
  Report Type: Spontaneous
  Country: CN (occurrence: CN)
  Receive Date: 20250429
  Receipt Date: 20250429
  Transmission Date: 20250716
  Serious: Yes (Other)
  Sender: MERCK SHARP & DOHME LLC
  Company Number: CN-009507513-2279786

PATIENT
  Age: 66 Year
  Sex: Male

DRUGS (2)
  1. NOXAFIL [Suspect]
     Active Substance: POSACONAZOLE
     Indication: Oral disorder
     Route: 048
     Dates: start: 20250310, end: 20250318
  2. CASPOFUNGIN [Suspect]
     Active Substance: CASPOFUNGIN
     Indication: Antifungal prophylaxis
     Dates: start: 20250318

REACTIONS (6)
  - Cognitive disorder [Recovering/Resolving]
  - Product use in unapproved indication [Unknown]
  - Agranulocytosis [Unknown]
  - Product use in unapproved indication [Unknown]
  - Immunodeficiency [Unknown]
  - Bone marrow disorder [Unknown]

NARRATIVE: CASE EVENT DATE: 20250310
